FAERS Safety Report 20624973 (Version 1)
Quarter: 2022Q1

REPORT INFORMATION
  Report Type: Other
  Country: DE (occurrence: None)
  Receive Date: 20220323
  Receipt Date: 20220323
  Transmission Date: 20220423
  Serious: Yes (Other)
  Sender: FDA-Public Use
  Company Number: DE-Saptalis Pharmaceuticals,LLC-000194

PATIENT
  Age: 71 Year
  Sex: Male

DRUGS (2)
  1. TRIAMCINOLONE [Suspect]
     Active Substance: TRIAMCINOLONE
     Indication: Oesophageal stenosis
     Dosage: 80 MG
     Dates: start: 201812
  2. BUDESONIDE [Suspect]
     Active Substance: BUDESONIDE
     Indication: Product used for unknown indication
     Dosage: 2 DOSES OF 1 MG FOR 6 WEEKS
     Route: 048

REACTIONS (1)
  - Oesophageal carcinoma recurrent [Recovered/Resolved]
